FAERS Safety Report 4688290-1 (Version None)
Quarter: 2005Q2

REPORT INFORMATION
  Report Type: 
  Country: None (occurrence: None)
  Receive Date: 20050610
  Receipt Date: 20050310
  Transmission Date: 20051028
  Serious: Yes (Death)
  Sender: FDA-Public Use
  Company Number: US-MERCK-0503USA02366

PATIENT
  Age: 83 Year
  Sex: Male
  Weight: 96 kg

DRUGS (6)
  1. VIOXX [Suspect]
     Indication: OSTEOARTHRITIS
     Route: 048
     Dates: start: 19990701, end: 20020603
  2. VIOXX [Suspect]
     Route: 065
  3. VIOXX [Suspect]
     Indication: RHEUMATOID ARTHRITIS
     Route: 048
     Dates: start: 19990701, end: 20020603
  4. VIOXX [Suspect]
     Route: 065
  5. DETROL [Concomitant]
     Indication: INCONTINENCE
     Route: 065
  6. SYNTHROID [Concomitant]
     Route: 065

REACTIONS (2)
  - ACUTE MYOCARDIAL INFARCTION [None]
  - EMOTIONAL DISTRESS [None]
